FAERS Safety Report 5974828-0 (Version None)
Quarter: 2008Q4

REPORT INFORMATION
  Report Type: 
  Country: None (occurrence: None)
  Receive Date: 20081201
  Receipt Date: 20081126
  Transmission Date: 20090506
  Serious: Yes (Other)
  Sender: FDA-Public Use
  Company Number: FR-PFIZER INC-2008100521

PATIENT
  Age: 70 Year
  Sex: Female

DRUGS (6)
  1. LYRICA [Suspect]
     Indication: POST HERPETIC NEURALGIA
     Dosage: DAILY DOSE:75MG-FREQ:EVERY DAY
     Dates: end: 20081101
  2. TRAMADOL HCL [Suspect]
     Dates: end: 20081101
  3. OXYGEN [Concomitant]
  4. AUGMENTIN '125' [Concomitant]
  5. LOXEN [Concomitant]
  6. ALL OTHER THERAPEUTIC PRODUCTS [Concomitant]

REACTIONS (1)
  - RESPIRATORY DISTRESS [None]
